FAERS Safety Report 5314600-8 (Version None)
Quarter: 2007Q2

REPORT INFORMATION
  Report Type: 
  Country: None (occurrence: None)
  Receive Date: 20070427
  Receipt Date: 20070413
  Transmission Date: 20071010
  Serious: Yes (Hospitalization)
  Sender: FDA-Public Use
  Company Number: A-CH2007-14546

PATIENT
  Age: 23 Year
  Sex: Male

DRUGS (2)
  1. ZAVESCA [Suspect]
     Indication: NIEMANN-PICK DISEASE
     Dosage: 200 MG, TID; ORAL 100 MG, TID; ORAL
     Route: 048
     Dates: start: 20061228, end: 20070310
  2. ZAVESCA [Suspect]
     Indication: NIEMANN-PICK DISEASE
     Dosage: 200 MG, TID; ORAL 100 MG, TID; ORAL
     Route: 048
     Dates: start: 20070311

REACTIONS (3)
  - AGITATION [None]
  - CONFUSIONAL STATE [None]
  - HALLUCINATION [None]
